FAERS Safety Report 5113448-7 (Version None)
Quarter: 2006Q3

REPORT INFORMATION
  Report Type: 
  Country: None (occurrence: None)
  Receive Date: 20060920
  Receipt Date: 20060905
  Transmission Date: 20061208
  Serious: Yes (Hospitalization)
  Sender: FDA-Public Use
  Company Number: 2006001740

PATIENT
  Age: 68 Year

DRUGS (3)
  1. ERLOTINIB (TABLET)  (ERLOTINIB HCL) [Suspect]
     Indication: PANCREATIC CARCINOMA METASTATIC
     Dosage: 100 MG (QD), ORAL
     Route: 048
     Dates: start: 20060816
  2. BEVACIZUMAB (INJECTION FOR INFUSION) [Suspect]
     Indication: PANCREATIC CARCINOMA METASTATIC
     Dosage: (Q2W), INTRAVENOUS
     Route: 042
     Dates: start: 20060816
  3. GEMCITABINE (GEMCITABINE) (INJECTION) [Suspect]
     Indication: PANCREATIC CARCINOMA METASTATIC
     Dosage: 1860 MG (QW), INTRAVENOUS
     Route: 042
     Dates: start: 20060816

REACTIONS (5)
  - C-REACTIVE PROTEIN INCREASED [None]
  - LYMPHOCYTE COUNT DECREASED [None]
  - NEUTROPHIL COUNT DECREASED [None]
  - PLATELET COUNT DECREASED [None]
  - WHITE BLOOD CELL COUNT DECREASED [None]
